FAERS Safety Report 9030674 (Version 2)
Quarter: 2014Q1

REPORT INFORMATION
  Report Type: Report from Study
  Country: BR (occurrence: BR)
  Receive Date: 20130123
  Receipt Date: 20140106
  Transmission Date: 20141002
  Serious: Yes (Other)
  Sender: FDA-Public Use
  Company Number: BR-ROCHE-1052642

PATIENT
  Age: 4 Year
  Sex: Female
  Weight: 13 kg

DRUGS (10)
  1. ACTEMRA [Suspect]
     Indication: JUVENILE IDIOPATHIC ARTHRITIS
     Route: 042
     Dates: start: 20110920
  2. ACTEMRA [Suspect]
     Dosage: 30 TH INFUSION
     Route: 042
     Dates: start: 20130105
  3. METHOTREXATE [Suspect]
     Indication: PRODUCT USED FOR UNKNOWN INDICATION
     Route: 065
  4. NORIPURUM [Concomitant]
     Route: 065
  5. PREDSIM [Concomitant]
     Route: 065
  6. PREDSIM [Concomitant]
     Route: 065
  7. NIMESULIDE [Concomitant]
     Dosage: DROPS
     Route: 065
  8. ENDOFOLIN [Concomitant]
  9. ADDERA PLUS [Concomitant]
  10. NAPROXEN [Concomitant]
     Route: 065

REACTIONS (6)
  - Respiratory failure [Recovering/Resolving]
  - Blood pressure decreased [Recovered/Resolved]
  - Decreased appetite [Unknown]
  - Cough [Recovered/Resolved]
  - Sinusitis [Recovering/Resolving]
  - Joint swelling [Unknown]
